FAERS Safety Report 9873394 (Version 1)
Quarter: 2014Q1

REPORT INFORMATION
  Report Type: Other
  Country: US (occurrence: US)
  Receive Date: 20140206
  Receipt Date: 20140206
  Transmission Date: 20141002
  Serious: No
  Sender: FDA-Public Use
  Company Number: US-ACORDA-ACO_33965_2013

PATIENT
  Sex: Female

DRUGS (4)
  1. AMPYRA [Suspect]
     Indication: PRODUCT USED FOR UNKNOWN INDICATION
     Dosage: 10 MG, QD
     Route: 048
  2. AMPYRA [Suspect]
     Dosage: 10 MG, UNK
     Dates: start: 20130128
  3. GILENYA [Concomitant]
     Indication: MULTIPLE SCLEROSIS
     Dosage: UNK
  4. BACLOFEN [Concomitant]
     Indication: PRODUCT USED FOR UNKNOWN INDICATION
     Dosage: UNK

REACTIONS (2)
  - Gait disturbance [Recovered/Resolved]
  - Inappropriate schedule of drug administration [Unknown]
